FAERS Safety Report 15062080 (Version 1)
Quarter: 2018Q2

REPORT INFORMATION
  Report Type: Spontaneous
  Country: US (occurrence: US)
  Receive Date: 20180625
  Receipt Date: 20180625
  Transmission Date: 20180711
  Serious: No
  Sender: FDA-Public Use
  Company Number: US-ACTELION-A-US2018-174264

PATIENT
  Age: 81 Year
  Sex: Female

DRUGS (2)
  1. VALCHLOR [Suspect]
     Active Substance: MECHLORETHAMINE
     Indication: MYCOSIS FUNGOIDES
     Dosage: APPLY THIN FILM, QD
     Route: 061
  2. VALCHLOR [Suspect]
     Active Substance: MECHLORETHAMINE
     Indication: T-CELL LYMPHOMA

REACTIONS (3)
  - Application site discolouration [Unknown]
  - Application site pain [Unknown]
  - Application site pruritus [Unknown]
